FAERS Safety Report 15908142 (Version 1)
Quarter: 2019Q1

REPORT INFORMATION
  Report Type: Spontaneous
  Country: US (occurrence: US)
  Receive Date: 20190204
  Receipt Date: 20190204
  Transmission Date: 20190417
  Serious: No
  Sender: FDA-Public Use
  Company Number: US-PRAGMA PHARMACEUTICALS, LLC-2018PRG00245

PATIENT

DRUGS (2)
  1. KEFLEX [Suspect]
     Active Substance: CEPHALEXIN
     Dosage: UNK
  2. TOCILIZUMAB. [Concomitant]
     Active Substance: TOCILIZUMAB

REACTIONS (1)
  - Abdominal discomfort [Unknown]
